FAERS Safety Report 13137953 (Version 2)
Quarter: 2017Q1

REPORT INFORMATION
  Report Type: Spontaneous
  Country: US (occurrence: US)
  Receive Date: 20170123
  Receipt Date: 20170208
  Transmission Date: 20170428
  Serious: Yes (Other)
  Sender: FDA-Public Use
  Company Number: US-ROCHE-1882899

PATIENT
  Age: 59 Year
  Sex: Male
  Weight: 70.3 kg

DRUGS (6)
  1. OXALIPLATIN. [Suspect]
     Active Substance: OXALIPLATIN
     Indication: RECTAL CANCER
     Route: 065
  2. CAPECITABINE. [Suspect]
     Active Substance: CAPECITABINE
     Indication: RECTAL CANCER METASTATIC
     Dosage: 14 DAYS, PT ONLY TAKEN 8 DAYS
     Route: 048
     Dates: start: 20170111
  3. OMEPRAZOLE. [Concomitant]
     Active Substance: OMEPRAZOLE
  4. LOTEM [Concomitant]
     Indication: PAIN
     Route: 048
  5. HYDROMORPHONE [Concomitant]
     Active Substance: HYDROMORPHONE
     Indication: PAIN
     Route: 048
     Dates: start: 201612
  6. AVASTIN [Suspect]
     Active Substance: BEVACIZUMAB
     Indication: RECTAL CANCER METASTATIC
     Route: 042
     Dates: start: 20170110, end: 20170111

REACTIONS (3)
  - Appendicitis perforated [Recovered/Resolved]
  - Neoplasm of appendix [Recovered/Resolved]
  - Appendicitis [Unknown]

NARRATIVE: CASE EVENT DATE: 20170117
